FAERS Safety Report 22318136 (Version 1)
Quarter: 2023Q2

REPORT INFORMATION
  Report Type: Spontaneous
  Country: TH (occurrence: US)
  Receive Date: 20230515
  Receipt Date: 20230515
  Transmission Date: 20230721
  Serious: Yes (Death, Hospitalization, Other)
  Sender: FDA-Public Use
  Company Number: TH-APOTEX-2023AP008154

PATIENT
  Age: 51 Year
  Sex: Male

DRUGS (3)
  1. SIROLIMUS [Suspect]
     Active Substance: SIROLIMUS
     Indication: Product used for unknown indication
     Dosage: UNK
     Route: 065
  2. PREDNISONE [Suspect]
     Active Substance: PREDNISONE
     Indication: Product used for unknown indication
     Dosage: 10 MILLIGRAM, QD
     Route: 065
  3. SULFAMETHOXAZOLE\TRIMETHOPRIM [Concomitant]
     Active Substance: SULFAMETHOXAZOLE\TRIMETHOPRIM
     Indication: Prophylaxis
     Dosage: UNK
     Route: 065

REACTIONS (11)
  - Acute kidney injury [Fatal]
  - Toxicity to various agents [Fatal]
  - Nephropathy toxic [Fatal]
  - Cerebellar ischaemia [Fatal]
  - Ischaemic stroke [Fatal]
  - Acute respiratory failure [Fatal]
  - Septic shock [Fatal]
  - Cytomegalovirus viraemia [Fatal]
  - Pneumonia cytomegaloviral [Fatal]
  - Abdominal infection [Fatal]
  - Polyomavirus-associated nephropathy [Fatal]
